FAERS Safety Report 6906751-9 (Version None)
Quarter: 2010Q3

REPORT INFORMATION
  Report Type: 
  Country: None (occurrence: None)
  Receive Date: 20100804
  Receipt Date: 20100728
  Transmission Date: 20110219
  Serious: Yes (Other)
  Sender: FDA-Public Use
  Company Number: GB-ABBOTT-10P-167-0660649-00

PATIENT
  Sex: Male

DRUGS (2)
  1. HUMIRA [Suspect]
     Indication: PRODUCT USED FOR UNKNOWN INDICATION
     Dates: start: 20090501, end: 20100301
  2. HUMIRA [Suspect]
     Dates: start: 20100601

REACTIONS (3)
  - ABDOMINAL PAIN [None]
  - BLADDER DISORDER [None]
  - BLOOD URINE PRESENT [None]
